FAERS Safety Report 8473894-0 (Version None)
Quarter: 2012Q2

REPORT INFORMATION
  Report Type: 
  Country: None (occurrence: None)
  Receive Date: 20120628
  Receipt Date: 20120314
  Transmission Date: 20120825
  Serious: Yes (Life-Threatening, Other)
  Sender: FDA-Public Use
  Company Number: US-MYLANLABS-2012S1001424

PATIENT
  Age: 58 Year
  Sex: Male
  Weight: 87.09 kg

DRUGS (12)
  1. NEURONTIN [Concomitant]
     Route: 048
  2. SENOKOT [Concomitant]
     Dosage: QD, PRN
  3. PEPCID [Concomitant]
  4. CLOZAPINE [Suspect]
     Indication: SCHIZOAFFECTIVE DISORDER
     Route: 048
     Dates: start: 20080601, end: 20120120
  5. COGENTIN [Concomitant]
  6. CLOZAPINE [Suspect]
     Indication: SCHIZOPHRENIA, PARANOID TYPE
     Route: 048
     Dates: start: 20080601, end: 20120120
  7. DDAVP [Concomitant]
  8. LEXAPRO [Concomitant]
     Route: 048
  9. LEXAPRO [Concomitant]
     Route: 048
  10. TRAZODONE HCL [Concomitant]
     Route: 048
  11. PRAVACHOL [Concomitant]
  12. COLACE [Concomitant]
     Dosage: QD,  PRN
     Route: 048

REACTIONS (3)
  - GRANULOCYTOPENIA [None]
  - AGRANULOCYTOSIS [None]
  - LEUKOPENIA [None]
